FAERS Safety Report 16771205 (Version 3)
Quarter: 2019Q3

REPORT INFORMATION
  Report Type: Report from Study
  Country: US (occurrence: US)
  Receive Date: 20190904
  Receipt Date: 20190909
  Transmission Date: 20191005
  Serious: Yes (Hospitalization, Other)
  Sender: FDA-Public Use
  Company Number: US-GILEAD-2019-0426441

PATIENT
  Age: 73 Year
  Sex: Female

DRUGS (3)
  1. UPTRAVI [Concomitant]
     Active Substance: SELEXIPAG
     Dosage: UNK
     Dates: start: 20190828
  2. COUMADIN [Concomitant]
     Active Substance: WARFARIN SODIUM
  3. AMBRISENTAN [Suspect]
     Active Substance: AMBRISENTAN
     Indication: PRODUCT USED FOR UNKNOWN INDICATION
     Dosage: 10 MG, QD
     Route: 048
     Dates: start: 20170314

REACTIONS (7)
  - Abdominal mass [Not Recovered/Not Resolved]
  - Headache [Unknown]
  - Respiratory failure [Unknown]
  - Diarrhoea [Unknown]
  - Feeling abnormal [Unknown]
  - Myalgia [Unknown]
  - Pneumonia [Unknown]
